FAERS Safety Report 10926393 (Version 1)
Quarter: 2015Q1

REPORT INFORMATION
  Report Type: Spontaneous
  Country: US (occurrence: None)
  Receive Date: 20150316
  Receipt Date: 20150316
  Transmission Date: 20150721
  Serious: Yes (Other)
  Sender: FDA-Public Use
  Company Number: None

PATIENT
  Age: 60 Year
  Sex: Female
  Weight: 59.88 kg

DRUGS (4)
  1. GLYBURIDE 5MG TABLETS 5MG HERTIAGE [Suspect]
     Active Substance: GLYBURIDE
     Indication: DIABETES MELLITUS
     Route: 048
     Dates: start: 20140114
  2. GLIMEPERIDE [Suspect]
     Active Substance: GLIMEPIRIDE
  3. METFORMIN [Suspect]
     Active Substance: METFORMIN HYDROCHLORIDE
     Indication: DIABETES MELLITUS
     Route: 048
     Dates: start: 20101019
  4. GLICLAZIDE [Suspect]
     Active Substance: GLICLAZIDE

REACTIONS (3)
  - Colitis ulcerative [None]
  - Hypoglycaemia [None]
  - Diarrhoea [None]

NARRATIVE: CASE EVENT DATE: 20101019
